FAERS Safety Report 5170350-2 (Version None)
Quarter: 2006Q4

REPORT INFORMATION
  Report Type: 
  Country: None (occurrence: None)
  Receive Date: 20061204
  Receipt Date: 20061121
  Transmission Date: 20070319
  Serious: Yes (Hospitalization, Other)
  Sender: FDA-Public Use
  Company Number: 2006BI009437

PATIENT
  Sex: Female

DRUGS (27)
  1. AVONEX [Suspect]
     Indication: RELAPSING-REMITTING MULTIPLE SCLEROSIS
     Dosage: QW; IM
     Route: 030
     Dates: start: 20021201
  2. WARFARIN SODIUM [Concomitant]
  3. DIGOXIN [Concomitant]
  4. PLAVIX [Concomitant]
  5. INDEROL [Concomitant]
  6. DILANTIN [Concomitant]
  7. MACRODANTIN [Concomitant]
  8. LIPITOR [Concomitant]
  9. PREMARIN [Concomitant]
  10. PREVACID [Concomitant]
  11. ALTACE [Concomitant]
  12. DILAUDID [Concomitant]
  13. SENOKOT [Concomitant]
  14. FUROSEMIDE INTENSOL [Concomitant]
  15. NITRO PATCHES [Concomitant]
  16. MULTI-VITAMIN [Concomitant]
  17. VITAMIN E [Concomitant]
  18. ASCORBIC ACID [Concomitant]
  19. VITAMIN D [Concomitant]
  20. VITAMIN B COMPLEX CAP [Concomitant]
  21. FLAX OIL [Concomitant]
  22. NITROGLYCERINE SPRAY [Concomitant]
  23. GRAVOL TAB [Concomitant]
  24. BENADRYL [Concomitant]
  25. VENTOLIN [Concomitant]
  26. TYLENOL W/ CODEINE NO. 3 [Concomitant]
  27. PULMICORT [Concomitant]

REACTIONS (6)
  - ARRHYTHMIA [None]
  - CARDIAC DISORDER [None]
  - FATIGUE [None]
  - LIPOMA EXCISION [None]
  - MYOCARDIAL INFARCTION [None]
  - SURGERY [None]
